FAERS Safety Report 21482570 (Version 4)
Quarter: 2022Q4

REPORT INFORMATION
  Report Type: Spontaneous
  Country: US (occurrence: US)
  Receive Date: 20221020
  Receipt Date: 20221219
  Transmission Date: 20230112
  Serious: Yes (Hospitalization, Other)
  Sender: FDA-Public Use
  Company Number: US-NOVOPROD-967945

PATIENT
  Age: 81 Year
  Sex: Female

DRUGS (6)
  1. NOVOLIN N [Suspect]
     Active Substance: INSULIN HUMAN
     Indication: Type 2 diabetes mellitus
     Dosage: 9 MG, QD
     Route: 058
     Dates: start: 20210510, end: 20221003
  2. NOVOLIN N [Suspect]
     Active Substance: INSULIN HUMAN
     Indication: Hyperglycaemia
  3. HUMULIN N [Concomitant]
     Active Substance: INSULIN HUMAN
     Indication: Product used for unknown indication
     Dosage: UNK
  4. RIOMET [METFORMIN] [Concomitant]
     Indication: Product used for unknown indication
     Dosage: 5 ML, BID AND INCREASE TO 10 ML IF REQUIRED.
     Route: 048
  5. SENOKOT [Concomitant]
     Active Substance: SENNOSIDES
     Indication: Constipation
     Dosage: 17.2 MG, QD (AT BEDTIME)
     Route: 048
  6. KEPPRA [Concomitant]
     Active Substance: LEVETIRACETAM
     Indication: Seizure
     Dosage: 1 G, BID

REACTIONS (10)
  - Limb injury [Recovered/Resolved]
  - Osteomyelitis acute [Recovering/Resolving]
  - Inflammation [Unknown]
  - Cataract operation [Recovered/Resolved]
  - Stomach mass [Not Recovered/Not Resolved]
  - Weight increased [Unknown]
  - Accident [Unknown]
  - Joint swelling [Recovered/Resolved]
  - Peripheral swelling [Recovered/Resolved]
  - Blood glucose increased [Recovering/Resolving]

NARRATIVE: CASE EVENT DATE: 20210929
